FAERS Safety Report 4303963-8 (Version None)
Quarter: 2004Q1

REPORT INFORMATION
  Report Type: 
  Country: None (occurrence: None)
  Receive Date: 20040223
  Receipt Date: 20031117
  Transmission Date: 20041129
  Serious: No
  Sender: FDA-Public Use
  Company Number: PHEH2003US10614

PATIENT
  Age: 70 Year
  Sex: Female

DRUGS (10)
  1. ZELNORM [Suspect]
     Indication: IRRITABLE BOWEL SYNDROME
     Dosage: QD, ORAL
     Route: 048
     Dates: start: 20030901
  2. PROPAFENONE HCL [Concomitant]
  3. MICARDIS [Concomitant]
  4. METOLAZONE [Concomitant]
  5. KLOR-CON [Concomitant]
  6. PROZAC [Concomitant]
  7. DIAZEPAM [Concomitant]
  8. ALLOPURINOL [Concomitant]
  9. FUROSEMIDE [Concomitant]
  10. PREVACID [Concomitant]

REACTIONS (2)
  - PAINFUL DEFAECATION [None]
  - WEIGHT INCREASED [None]
